FAERS Safety Report 7074077-1 (Version None)
Quarter: 2010Q4

REPORT INFORMATION
  Report Type: 
  Country: None (occurrence: None)
  Receive Date: 20101029
  Receipt Date: 20101018
  Transmission Date: 20110411
  Serious: Yes (Hospitalization, Other)
  Sender: FDA-Public Use
  Company Number: CH-PFIZER INC-2010131434

PATIENT
  Age: 53 Year
  Sex: Female
  Weight: 66 kg

DRUGS (14)
  1. LYRICA [Suspect]
     Indication: PAIN
     Dosage: 25 MG, 1X/DAY
     Route: 048
     Dates: start: 20100603, end: 20100604
  2. LYRICA [Suspect]
     Dosage: 75 MG, 1X/DAY
     Route: 048
     Dates: start: 20100605
  3. FLUCTINE [Suspect]
     Dosage: 40 MG, 1X/DAY
     Route: 048
     Dates: start: 20091001, end: 20100601
  4. FLUCTINE [Suspect]
     Dosage: 60 MG, 1X/DAY
     Route: 048
     Dates: start: 20100602, end: 20100628
  5. IMOVANE [Concomitant]
     Dosage: 7.5 MG, 1X/DAY
     Route: 048
     Dates: end: 20100713
  6. CIMICIFUGA ROOT [Concomitant]
     Dosage: 13 MG, 1X/DAY
     Route: 048
     Dates: end: 20100713
  7. MST [Concomitant]
     Dosage: 140 MG, 1X/DAY
     Route: 048
     Dates: end: 20100713
  8. ACETYLCYSTEINE [Concomitant]
     Dosage: 600 MG, 1X/DAY
     Route: 048
     Dates: start: 20100622, end: 20100712
  9. INSULIN DETEMIR [Concomitant]
     Dosage: 12 IU, 1X/DAY
     Route: 058
     Dates: end: 20100713
  10. NOVORAPID [Concomitant]
     Dosage: UNK
     Route: 058
     Dates: end: 20100713
  11. TEMESTA [Concomitant]
     Dosage: 2 MG, 1X/DAY
     Route: 048
     Dates: start: 20100528, end: 20100608
  12. TEMESTA [Concomitant]
     Dosage: 1 MG, 1X/DAY
     Route: 048
     Dates: start: 20100609
  13. IRFEN [Concomitant]
     Dosage: 600 MG, 1X/DAY
     Route: 048
     Dates: start: 20100528, end: 20100609
  14. NEXIUM [Concomitant]
     Dosage: 20 MG, 1X/DAY
     Route: 048
     Dates: start: 20100528, end: 20100609

REACTIONS (7)
  - BLOOD GLUCOSE FLUCTUATION [None]
  - BLOOD GLUCOSE INCREASED [None]
  - BRONCHITIS [None]
  - C-REACTIVE PROTEIN INCREASED [None]
  - HALLUCINATION, VISUAL [None]
  - HYPONATRAEMIA [None]
  - SOMNOLENCE [None]
